FAERS Safety Report 18495012 (Version 1)
Quarter: 2020Q4

REPORT INFORMATION
  Report Type: Spontaneous
  Country: US (occurrence: US)
  Receive Date: 20201112
  Receipt Date: 20201112
  Transmission Date: 20210114
  Serious: No
  Sender: FDA-Public Use
  Company Number: US-CADILA HEALTHCARE LIMITED-US-ZYDUS-043150

PATIENT
  Sex: Female

DRUGS (4)
  1. LOSARTAN. [Concomitant]
     Active Substance: LOSARTAN
     Indication: HYPERTENSION
     Dosage: FREQUENCY :UNKNOWN
     Route: 065
  2. MORPHINE [Concomitant]
     Active Substance: MORPHINE
     Indication: PAIN
     Dosage: 30 MILLIGRAM,FREQUENCY :TWICE DAILY
     Route: 065
  3. LEVOTHYROXINE. [Concomitant]
     Active Substance: LEVOTHYROXINE
     Indication: HYPOTHYROIDISM
     Dosage: 50 MICROGRAM,FREQUENCY :ONCE DAILY
     Route: 065
  4. HYDROXYCHLOROQUINE [Suspect]
     Active Substance: HYDROXYCHLOROQUINE
     Indication: SMALL FIBRE NEUROPATHY
     Dosage: VARIES,FREQUENCY :ONCE DAILY
     Route: 048
     Dates: start: 20191018, end: 20191026

REACTIONS (6)
  - Therapeutic response unexpected [Unknown]
  - Product use in unapproved indication [Recovered/Resolved]
  - Myalgia [Recovered/Resolved]
  - Neck pain [Recovered/Resolved]
  - Back pain [Recovered/Resolved]
  - Tendon pain [Recovered/Resolved]

NARRATIVE: CASE EVENT DATE: 201910
